FAERS Safety Report 18553932 (Version 3)
Quarter: 2021Q3

REPORT INFORMATION
  Report Type: Spontaneous
  Country: US (occurrence: US)
  Receive Date: 20201127
  Receipt Date: 20210829
  Transmission Date: 20211014
  Serious: No
  Sender: FDA-Public Use
  Company Number: NVSC2020US311192

PATIENT
  Sex: Male

DRUGS (2)
  1. PAROXETINE. [Concomitant]
     Active Substance: PAROXETINE
     Indication: PRODUCT USED FOR UNKNOWN INDICATION
     Dosage: UNK
     Route: 065
  2. KESIMPTA [Suspect]
     Active Substance: OFATUMUMAB
     Indication: MULTIPLE SCLEROSIS
     Dosage: UNK (INJECTION 1 PEN SUBCUTANEOUS AT WEEK 0, WEEK1 AND WEEK 2 AS DIRECTED)
     Route: 058

REACTIONS (3)
  - Headache [Unknown]
  - Fatigue [Unknown]
  - Chills [Unknown]
